FAERS Safety Report 8798187 (Version 1)
Quarter: 2012Q4

REPORT INFORMATION
  Report Type: 
  Country: US (occurrence: US)
  Receive Date: 20120920
  Receipt Date: 20120920
  Transmission Date: 20130627
  Serious: No
  Sender: FDA-Public Use
  Company Number: US-BAUSCH-2011BL008879

PATIENT
  Age: 64 Year
  Sex: Female

DRUGS (3)
  1. ERYTHROMYCIN [Suspect]
     Indication: CONJUNCTIVITIS
     Dosage: daily dose: 1 RIBBON
     Route: 047
     Dates: start: 20111215, end: 20111215
  2. ERYTHROMYCIN [Suspect]
     Indication: BLEPHARITIS
  3. VISINE TEARS [Concomitant]
     Indication: DRY EYE
     Route: 047

REACTIONS (7)
  - Photophobia [Recovered/Resolved]
  - Dizziness [Recovered/Resolved]
  - Cough [Recovered/Resolved]
  - Asthenia [Not Recovered/Not Resolved]
  - Vision blurred [Recovering/Resolving]
  - Headache [Not Recovered/Not Resolved]
  - Eye pain [Not Recovered/Not Resolved]
